FAERS Safety Report 13363905 (Version 1)
Quarter: 2017Q1

REPORT INFORMATION
  Report Type: Spontaneous
  Country: US (occurrence: US)
  Receive Date: 20170323
  Receipt Date: 20170323
  Transmission Date: 20170429
  Serious: Yes (Death)
  Sender: FDA-Public Use
  Company Number: US-PFIZER INC-2017120738

PATIENT

DRUGS (1)
  1. HALCION [Suspect]
     Active Substance: TRIAZOLAM
     Dosage: UNKNOWN DOSE REGIMEN

REACTIONS (1)
  - Death [Fatal]
